FAERS Safety Report 4363830-0 (Version None)
Quarter: 2004Q2

REPORT INFORMATION
  Report Type: 
  Country: None (occurrence: None)
  Receive Date: 20040512
  Receipt Date: 20040430
  Transmission Date: 20050107
  Serious: Yes (Hospitalization)
  Sender: FDA-Public Use
  Company Number: 200410231BVD

PATIENT
  Age: 51 Year
  Sex: Female
  Weight: 70 kg

DRUGS (2)
  1. GAMIMUNE N, 10% [Suspect]
     Indication: ATAXIA
     Dosage: 28 G, INTRAVENOUS
     Route: 042
     Dates: start: 20040217, end: 20040221
  2. ACETAMINOPHEN [Concomitant]

REACTIONS (4)
  - HEADACHE [None]
  - INFUSION RELATED REACTION [None]
  - NEOPLASM [None]
  - PULMONARY EMBOLISM [None]
